FAERS Safety Report 9986360 (Version 2)
Quarter: 2014Q1

REPORT INFORMATION
  Report Type: Report from Study
  Country: PR (occurrence: PR)
  Receive Date: 20140307
  Receipt Date: 20140307
  Transmission Date: 20141002
  Serious: No
  Sender: FDA-Public Use
  Company Number: PR-ABBVIE-12P-131-0897823-00

PATIENT
  Sex: Female
  Weight: 47.67 kg

DRUGS (6)
  1. HUMIRA [Suspect]
     Indication: RHEUMATOID ARTHRITIS
     Route: 058
     Dates: start: 2011, end: 2012
  2. HUMIRA [Suspect]
     Route: 058
     Dates: start: 2012
  3. METHOTREXATE [Concomitant]
     Indication: RHEUMATOID ARTHRITIS
     Dosage: 4 TABS WEEKLY
     Route: 048
  4. CYMBALTA [Concomitant]
     Indication: FIBROMYALGIA
     Dosage: 1 TAB DAILY
     Route: 048
  5. NEURONTIN [Concomitant]
     Indication: FIBROMYALGIA
     Dosage: 1 TAB DAILY
     Route: 048
  6. FOLIC ACID [Concomitant]
     Indication: VITAMIN SUPPLEMENTATION
     Dosage: 1 TAB DAILY
     Route: 048

REACTIONS (1)
  - Bronchitis [Unknown]
